FAERS Safety Report 12987430 (Version 1)
Quarter: 2016Q4

REPORT INFORMATION
  Report Type: Spontaneous
  Country: GB (occurrence: GB)
  Receive Date: 20161130
  Receipt Date: 20161130
  Transmission Date: 20170207
  Serious: Yes (Disabling, Other)
  Sender: FDA-Public Use
  Company Number: GB-TEVA-714721ACC

PATIENT
  Age: 32 Year
  Sex: Female
  Weight: 60 kg

DRUGS (5)
  1. NIFEDIPINE. [Suspect]
     Active Substance: NIFEDIPINE
     Indication: POOR PERIPHERAL CIRCULATION
     Route: 048
     Dates: start: 20161029, end: 20161102
  2. MYCOPHENOLATE MOFETIL. [Concomitant]
     Active Substance: MYCOPHENOLATE MOFETIL
  3. IRBESARTAN. [Concomitant]
     Active Substance: IRBESARTAN
  4. PREDNISOLONE. [Concomitant]
     Active Substance: PREDNISOLONE
  5. OMEPRAZOLE. [Concomitant]
     Active Substance: OMEPRAZOLE

REACTIONS (2)
  - Joint swelling [Recovered/Resolved]
  - Peripheral swelling [Recovered/Resolved]

NARRATIVE: CASE EVENT DATE: 20161029
